FAERS Safety Report 17827811 (Version 1)
Quarter: 2020Q2

REPORT INFORMATION
  Report Type: Spontaneous
  Country: US (occurrence: US)
  Receive Date: 20200526
  Receipt Date: 20200526
  Transmission Date: 20200714
  Serious: No
  Sender: FDA-Public Use
  Company Number: None

PATIENT
  Age: 55 Year
  Weight: 65.25 kg

DRUGS (13)
  1. CRESTOR [Concomitant]
     Active Substance: ROSUVASTATIN CALCIUM
  2. PROBIOTIC [Concomitant]
     Active Substance: PROBIOTICS NOS
  3. QUINAPRIL TABS 10 MG [Suspect]
     Active Substance: QUINAPRIL HYDROCHLORIDE
     Indication: HYPERTENSION
     Dosage: ?          QUANTITY:1 TABLET(S);?
     Route: 048
  4. MULTIVITAMIN [Concomitant]
     Active Substance: VITAMINS
  5. VITAMIN D [Concomitant]
     Active Substance: VITAMIN D NOS
  6. CHROMIUM PICCOLINATE [Concomitant]
  7. CQ10 [Concomitant]
     Active Substance: UBIDECARENONE
  8. BIOFLEX [Concomitant]
     Active Substance: GLUCOSAMINE SULFATE
  9. FLAXSEED [Concomitant]
     Active Substance: FLAX SEED
  10. VITAMIN C [Concomitant]
     Active Substance: ASCORBIC ACID
  11. BIOTIN [Concomitant]
     Active Substance: BIOTIN
  12. SYNTHROID [Concomitant]
     Active Substance: LEVOTHYROXINE SODIUM
  13. FREESTYLE CGM [Concomitant]

REACTIONS (1)
  - Drug ineffective [None]

NARRATIVE: CASE EVENT DATE: 20200522
